FAERS Safety Report 8003118-X (Version None)
Quarter: 2011Q4

REPORT INFORMATION
  Report Type: 
  Country: None (occurrence: None)
  Receive Date: 20111222
  Receipt Date: 20111212
  Transmission Date: 20120403
  Serious: Yes (Other)
  Sender: FDA-Public Use
  Company Number: PHHY2011AU108780

PATIENT
  Sex: Female

DRUGS (5)
  1. SEROQUEL [Concomitant]
     Indication: MUSCULOSKELETAL DISCOMFORT
  2. TEGRETOL [Suspect]
     Indication: CONVULSION
  3. TEMAZEPAM [Concomitant]
     Indication: MUSCULOSKELETAL DISCOMFORT
  4. VALPROATE SODIUM [Concomitant]
     Indication: EPILEPSY
  5. TRAMADOL HCL [Concomitant]
     Indication: MUSCULOSKELETAL DISCOMFORT

REACTIONS (2)
  - CEREBROVASCULAR ACCIDENT [None]
  - SUICIDAL IDEATION [None]
